FAERS Safety Report 19544993 (Version 2)
Quarter: 2021Q3

REPORT INFORMATION
  Report Type: Report from Study
  Country: US (occurrence: US)
  Receive Date: 20210713
  Receipt Date: 20210925
  Transmission Date: 20211014
  Serious: No
  Sender: FDA-Public Use
  Company Number: NVSC2021US148291

PATIENT
  Age: 58 Year
  Sex: Female

DRUGS (3)
  1. COSENTYX [Suspect]
     Active Substance: SECUKINUMAB
     Dosage: UNK (FIRST DOSE)
     Route: 065
     Dates: start: 202106
  2. COSENTYX [Suspect]
     Active Substance: SECUKINUMAB
     Indication: ANKYLOSING SPONDYLITIS
     Dosage: 150 MG , QMO (BENEATH THE SKIN, USUALLY VIA INJECTION)
     Route: 058
  3. COSENTYX [Suspect]
     Active Substance: SECUKINUMAB
     Dosage: UNK (SECOND DOSE)
     Route: 065
     Dates: start: 20210630

REACTIONS (1)
  - Infection [Unknown]

NARRATIVE: CASE EVENT DATE: 202002
